FAERS Safety Report 9122316 (Version 1)
Quarter: 2013Q1

REPORT INFORMATION
  Report Type: Spontaneous
  Country: DE (occurrence: DE)
  Receive Date: 20130227
  Receipt Date: 20130227
  Transmission Date: 20140127
  Serious: Yes (Other)
  Sender: FDA-Public Use
  Company Number: DE-PFIZER INC-2013040534

PATIENT
  Age: 80 Year
  Sex: Male

DRUGS (5)
  1. VIAGRA [Suspect]
     Dosage: 50 MG, TWICE
     Dates: start: 200909, end: 200909
  2. TOPAMAX [Concomitant]
     Indication: MIGRAINE
  3. BLOPRESS [Concomitant]
     Indication: BLOOD PRESSURE
  4. SIMVASTATIN [Concomitant]
     Indication: HYPERLIPIDAEMIA
  5. OMEPRAZOL [Concomitant]
     Indication: OESOPHAGITIS

REACTIONS (6)
  - Spondylolisthesis [Unknown]
  - Anorectal disorder [Not Recovered/Not Resolved]
  - Bladder neck sclerosis [Unknown]
  - Back pain [Not Recovered/Not Resolved]
  - Pelvic discomfort [Unknown]
  - Micturition disorder [Unknown]
